FAERS Safety Report 15888049 (Version 1)
Quarter: 2019Q1

REPORT INFORMATION
  Report Type: Spontaneous
  Country: US (occurrence: US)
  Receive Date: 20190108
  Receipt Date: 20190108
  Transmission Date: 20190417
  Serious: No
  Sender: FDA-Public Use
  Company Number: None

PATIENT
  Sex: Female

DRUGS (1)
  1. OCTREOTIDE 50 UG/ML PF SYR 50MCG/ML MYLAN INSTITUTIONAL [Suspect]
     Active Substance: OCTREOTIDE
     Indication: DRUG THERAPY
     Route: 058
     Dates: start: 20181207, end: 20190104

REACTIONS (1)
  - Hypersensitivity [None]
